FAERS Safety Report 5882576-0 (Version None)
Quarter: 2008Q3

REPORT INFORMATION
  Report Type: 
  Country: None (occurrence: None)
  Receive Date: 20080913
  Receipt Date: 20080811
  Transmission Date: 20090109
  Serious: No
  Sender: FDA-Public Use
  Company Number: US-ABBOTT-08P-163-0469718-00

PATIENT
  Sex: Female
  Weight: 54.934 kg

DRUGS (4)
  1. HUMIRA [Suspect]
     Indication: CROHN'S DISEASE
     Route: 050
     Dates: start: 20080201
  2. CETIRIZINE HYDROCHLORIDE [Concomitant]
     Indication: NASAL CONGESTION
     Route: 048
  3. VIGRAN [Concomitant]
     Indication: VITAMIN SUPPLEMENTATION
     Dosage: DAILY
     Route: 048
  4. FISH OIL [Concomitant]
     Indication: DRUG USE FOR UNKNOWN INDICATION
     Route: 048

REACTIONS (5)
  - ARTHRALGIA [None]
  - JOINT STIFFNESS [None]
  - OROPHARYNGEAL PAIN [None]
  - PYREXIA [None]
  - TONSILLAR DISORDER [None]
